FAERS Safety Report 6693880-0 (Version None)
Quarter: 2010Q2

REPORT INFORMATION
  Report Type: 
  Country: None (occurrence: None)
  Receive Date: 20100423
  Receipt Date: 20100415
  Transmission Date: 20101027
  Serious: Yes (Disabling)
  Sender: FDA-Public Use
  Company Number: PHHY2010GB25211

PATIENT
  Age: 74 Year
  Sex: Female

DRUGS (8)
  1. ACLASTA [Suspect]
     Indication: OSTEITIS DEFORMANS
     Dosage: UNK
     Route: 042
     Dates: start: 20100118
  2. ASPIRIN [Concomitant]
     Dosage: 75 MG, QD
  3. EMULSIFYING OINTMENT [Concomitant]
     Dosage: BD
  4. FLOXACILLIN SODIUM [Concomitant]
     Dosage: 500 MG, QID
  5. FLUOCINOLONE ACETONIDE [Concomitant]
     Dosage: BD
  6. PERINDOPRIL ERBUMINE [Concomitant]
     Dosage: 2 MG, QD
  7. SERETIDE [Concomitant]
     Dosage: 1 DF, BID
  8. TERBUTALINE SULFATE [Concomitant]
     Dosage: 500 MG, PRN

REACTIONS (3)
  - CELLULITIS [None]
  - DERMATITIS [None]
  - OEDEMA PERIPHERAL [None]
